FAERS Safety Report 19239585 (Version 1)
Quarter: 2021Q2

REPORT INFORMATION
  Report Type: Spontaneous
  Country: US (occurrence: US)
  Receive Date: 20210511
  Receipt Date: 20210511
  Transmission Date: 20210717
  Serious: No
  Sender: FDA-Public Use
  Company Number: US-JNJFOC-20210445286

PATIENT
  Age: 24 Year
  Sex: Male

DRUGS (2)
  1. MENS ROGAINE EXTRA STRENGTH [Suspect]
     Active Substance: MINOXIDIL
     Indication: ALOPECIA
     Dosage: DOSE AND FREQUENCY: HALF CAP AND TWICE DAILY TO SCALP
     Route: 061
     Dates: start: 20210419
  2. MENS ROGAINE EXTRA STRENGTH [Suspect]
     Active Substance: MINOXIDIL
     Route: 061

REACTIONS (4)
  - Seborrhoea [Recovering/Resolving]
  - Product quality issue [Unknown]
  - Product formulation issue [Unknown]
  - Hair texture abnormal [Recovering/Resolving]

NARRATIVE: CASE EVENT DATE: 202104
